FAERS Safety Report 16038920 (Version 1)
Quarter: 2019Q1

REPORT INFORMATION
  Report Type: Spontaneous
  Country: US (occurrence: US)
  Receive Date: 20190306
  Receipt Date: 20190306
  Transmission Date: 20190418
  Serious: Yes (Other)
  Sender: FDA-Public Use
  Company Number: PHEH2019US008942

PATIENT
  Sex: Female
  Weight: 62.14 kg

DRUGS (20)
  1. PROCARDIA XL [Concomitant]
     Active Substance: NIFEDIPINE
     Indication: MYOCARDIAL INFARCTION
     Dosage: 30 MG, QD
     Route: 065
     Dates: start: 2011
  2. TRAMADOL. [Concomitant]
     Active Substance: TRAMADOL
     Indication: ARTHRITIS
     Dosage: 50 MG, BID
     Route: 065
     Dates: start: 2008
  3. SYNTHROID [Concomitant]
     Active Substance: LEVOTHYROXINE SODIUM
     Indication: PRODUCT USED FOR UNKNOWN INDICATION
     Dosage: 50 UG, QD
     Route: 065
     Dates: start: 2011
  4. VITAMIN D [Concomitant]
     Active Substance: CHOLECALCIFEROL
     Indication: VITAMIN D DECREASED
     Dosage: 50000 OT, QMO
     Dates: start: 2013
  5. IMBRUVICA [Concomitant]
     Active Substance: IBRUTINIB
     Indication: NEOPLASM MALIGNANT
     Dosage: 140 MG, (3 TAB DAILY)
     Route: 065
     Dates: start: 2013
  6. ALREX [Concomitant]
     Active Substance: LOTEPREDNOL ETABONATE
     Indication: DRY EYE
     Dosage: 2 %, BID (IN LEFT EYE
     Route: 065
     Dates: start: 1992
  7. SERTRALINE HCL [Concomitant]
     Active Substance: SERTRALINE HYDROCHLORIDE
     Indication: HEART RATE INCREASED
     Dosage: 52 MG, QD
     Route: 065
     Dates: start: 1998
  8. ASPIRIN. [Concomitant]
     Active Substance: ASPIRIN
     Indication: BLOOD VISCOSITY DECREASED
     Dosage: 81 MG, QD
     Route: 065
     Dates: start: 2011
  9. SANDOSTATIN LAR DEPOT [Suspect]
     Active Substance: OCTREOTIDE ACETATE
     Indication: PRODUCT USED FOR UNKNOWN INDICATION
     Route: 065
  10. ATROPINE. [Suspect]
     Active Substance: ATROPINE
     Indication: DIARRHOEA
     Dosage: 2.5 MG, (2 TAB 2 TIMES A DAY)
     Route: 065
     Dates: start: 201607
  11. CLONAZEPAM. [Concomitant]
     Active Substance: CLONAZEPAM
     Indication: INSOMNIA
     Dosage: 0.5 MG, QD
     Route: 065
     Dates: start: 1998
  12. PROLIA [Concomitant]
     Active Substance: DENOSUMAB
     Indication: BONE DISORDER
     Dosage: 60 MG, (SHOTS EVERY 6 MONTHS
     Route: 065
  13. IMDUR [Concomitant]
     Active Substance: ISOSORBIDE MONONITRATE
     Indication: MYOCARDIAL INFARCTION
     Dosage: 60 MG, QD
     Route: 065
     Dates: start: 1998
  14. PROPRANOLOL [Concomitant]
     Active Substance: PROPRANOLOL HYDROCHLORIDE
     Indication: MYOCARDIAL INFARCTION
     Dosage: 20 MG, BID (2 TIMES A DAY AM AND PM)
     Route: 065
     Dates: start: 2011
  15. DIAZEPAM. [Concomitant]
     Active Substance: DIAZEPAM
     Indication: PALPITATIONS
     Dosage: 2 MG, BID (IN AM AND PM)
     Route: 065
     Dates: start: 2011
  16. VITAMIN B12 [Concomitant]
     Active Substance: CYANOCOBALAMIN
     Indication: VITAMIN B12 DEFICIENCY
     Dosage: 100 UG, QMO
     Route: 065
     Dates: start: 2011
  17. OXYCONTIN [Concomitant]
     Active Substance: OXYCODONE HYDROCHLORIDE
     Indication: PAIN
     Dosage: 10 MG, Q12H (2 TABLET 2 TIMES DAILY
     Route: 065
     Dates: start: 2015
  18. POTASSIUM [Concomitant]
     Active Substance: POTASSIUM
     Indication: BONE DISORDER
     Dosage: 15 ML, QD
     Route: 065
     Dates: start: 2013
  19. ZOCOR [Concomitant]
     Active Substance: SIMVASTATIN
     Indication: BLOOD CHOLESTEROL
     Dosage: 20 MG, QD
     Route: 065
     Dates: start: 2012
  20. ONDANSETRON [Concomitant]
     Active Substance: ONDANSETRON
     Indication: VOMITING
     Dosage: 1 DF, TID
     Route: 065
     Dates: start: 2008

REACTIONS (7)
  - Muscle spasms [Unknown]
  - Diarrhoea [Unknown]
  - Weight increased [Unknown]
  - Bowel movement irregularity [Unknown]
  - Gastric cancer [Unknown]
  - Abdominal discomfort [Unknown]
  - Colon cancer [Unknown]
